FAERS Safety Report 23765891 (Version 1)
Quarter: 2024Q2

REPORT INFORMATION
  Report Type: Spontaneous
  Country: US (occurrence: US)
  Receive Date: 20240421
  Receipt Date: 20240421
  Transmission Date: 20240716
  Serious: Yes (Other)
  Sender: FDA-Public Use
  Company Number: US-BRISTOL-MYERS SQUIBB COMPANY-2024-056441

PATIENT
  Age: 63 Year
  Sex: Male
  Weight: 89.36 kg

DRUGS (9)
  1. REVLIMID [Suspect]
     Active Substance: LENALIDOMIDE
     Indication: Plasma cell myeloma
     Route: 048
     Dates: start: 20151113, end: 20151123
  2. REVLIMID [Suspect]
     Active Substance: LENALIDOMIDE
     Route: 048
     Dates: start: 20160229, end: 20160411
  3. REVLIMID [Suspect]
     Active Substance: LENALIDOMIDE
     Route: 048
     Dates: start: 20160429, end: 20170327
  4. CARFILZOMIB [Suspect]
     Active Substance: CARFILZOMIB
     Indication: Plasma cell myeloma
     Route: 042
     Dates: start: 20160429, end: 20180920
  5. VELCADE [Concomitant]
     Active Substance: BORTEZOMIB
     Indication: Plasma cell myeloma
     Dosage: 2X WEEKLY, DAYS 1 AND 4 EVERY 7DAYS, 1 WEEK OFF EVERY 14AYS.
     Route: 058
     Dates: start: 20151022, end: 20161123
  6. VELCADE [Concomitant]
     Active Substance: BORTEZOMIB
     Dosage: 1X WEEKLY, NO REST PERIOD, DAY 1 EVERY 7DAYS
     Route: 058
     Dates: start: 20160229, end: 20160411
  7. DEXAMETHASONE [Concomitant]
     Active Substance: DEXAMETHASONE
     Indication: Plasma cell myeloma
     Dosage: DAYS 1, 4, 8, 11
     Route: 042
     Dates: start: 20151022, end: 20151123
  8. DEXAMETHASONE [Concomitant]
     Active Substance: DEXAMETHASONE
     Dosage: DAYS 1, 4, 8, 11
     Route: 048
     Dates: start: 20160229, end: 20160411
  9. DEXAMETHASONE [Concomitant]
     Active Substance: DEXAMETHASONE
     Dosage: DAYS 1, 4, 8, 11
     Route: 048
     Dates: start: 20160429, end: 20180413

REACTIONS (1)
  - Renal cell carcinoma [Not Recovered/Not Resolved]

NARRATIVE: CASE EVENT DATE: 20180917
